FAERS Safety Report 25435624 (Version 2)
Quarter: 2025Q3

REPORT INFORMATION
  Report Type: Report from Study
  Country: US (occurrence: US)
  Receive Date: 20250613
  Receipt Date: 20250723
  Transmission Date: 20251020
  Serious: Yes (Hospitalization)
  Sender: TAKEDA
  Company Number: US-TAKEDA-2024TUS080252

PATIENT
  Sex: Male
  Weight: 98 kg

DRUGS (14)
  1. LANADELUMAB [Suspect]
     Active Substance: LANADELUMAB
     Indication: Immune system disorder
  2. LANADELUMAB [Suspect]
     Active Substance: LANADELUMAB
     Dosage: 300 MILLIGRAM, Q2WEEKS
  3. LANADELUMAB [Suspect]
     Active Substance: LANADELUMAB
  4. METOPROLOL TARTRATE [Concomitant]
     Active Substance: METOPROLOL TARTRATE
  5. LEVOTHYROXINE SODIUM [Concomitant]
     Active Substance: LEVOTHYROXINE SODIUM
  6. FUROSEMIDE [Concomitant]
     Active Substance: FUROSEMIDE
  7. VITAMIN D [Concomitant]
     Active Substance: VITAMIN D NOS
  8. ALBUTEROL\IPRATROPIUM [Concomitant]
     Active Substance: ALBUTEROL\IPRATROPIUM
  9. ELIQUIS [Concomitant]
     Active Substance: APIXABAN
  10. ALBUTEROL SULFATE [Concomitant]
     Active Substance: ALBUTEROL SULFATE
  11. FLUTICASONE FUROATE\SALMETEROL XINAFOATE [Concomitant]
     Active Substance: FLUTICASONE FUROATE\SALMETEROL XINAFOATE
  12. COLCHICINE [Concomitant]
     Active Substance: COLCHICINE
  13. PREDNISONE [Concomitant]
     Active Substance: PREDNISONE
  14. ICATIBANT [Concomitant]
     Active Substance: ICATIBANT ACETATE

REACTIONS (6)
  - COVID-19 [Unknown]
  - Limb mass [Unknown]
  - Back pain [Recovering/Resolving]
  - Product dose omission issue [Unknown]
  - Respiratory tract infection [Unknown]
  - Hereditary angioedema [Unknown]
